FAERS Safety Report 17373285 (Version 20)
Quarter: 2025Q3

REPORT INFORMATION
  Report Type: Report from Study
  Country: US (occurrence: US)
  Receive Date: 20200205
  Receipt Date: 20250729
  Transmission Date: 20251021
  Serious: Yes (Hospitalization, Other)
  Sender: TAKEDA
  Company Number: US-SHIRE-US202004073

PATIENT
  Age: 57 Year
  Sex: Female
  Weight: 113 kg

DRUGS (47)
  1. HUMAN IMMUNOGLOBULIN G [Suspect]
     Active Substance: HUMAN IMMUNOGLOBULIN G
     Indication: Immunodeficiency common variable
     Dosage: 11 GRAM, 1/WEEK
  2. ACETAMINOPHEN [Concomitant]
     Active Substance: ACETAMINOPHEN
  3. METOPROLOL TARTRATE [Concomitant]
     Active Substance: METOPROLOL TARTRATE
  4. CYMBALTA [Concomitant]
     Active Substance: DULOXETINE HYDROCHLORIDE
  5. FLUTICASONE PROPIONATE [Concomitant]
     Active Substance: FLUTICASONE PROPIONATE
  6. ACETAMINOPHEN\HYDROCODONE [Concomitant]
     Active Substance: ACETAMINOPHEN\HYDROCODONE
  7. PREDNISONE [Concomitant]
     Active Substance: PREDNISONE
  8. FOLIC ACID [Concomitant]
     Active Substance: FOLIC ACID
  9. HUMIRA [Concomitant]
     Active Substance: ADALIMUMAB
  10. BACLOFEN [Concomitant]
     Active Substance: BACLOFEN
  11. PANTOPRAZOLE SODIUM [Concomitant]
     Active Substance: PANTOPRAZOLE SODIUM
  12. ZOLPIDEM TARTRATE [Concomitant]
     Active Substance: ZOLPIDEM TARTRATE
  13. HYDROXYCHLOROQUINE SULFATE [Concomitant]
     Active Substance: HYDROXYCHLOROQUINE SULFATE
  14. LIDOCAINE [Concomitant]
     Active Substance: LIDOCAINE
  15. DIFLUCAN [Concomitant]
     Active Substance: FLUCONAZOLE
  16. VITAMIN D3 [Concomitant]
     Active Substance: CHOLECALCIFEROL
  17. VITAMIN B [Concomitant]
     Active Substance: VITAMIN B
  18. EVENITY [Concomitant]
     Active Substance: ROMOSOZUMAB-AQQG
  19. DIPHENHYDRAMINE HYDROCHLORIDE [Concomitant]
     Active Substance: DIPHENHYDRAMINE HYDROCHLORIDE
  20. CALCIUM 600 PLUS VITAMIN D3 [Concomitant]
  21. CALCIUM\CHOLECALCIFEROL [Concomitant]
     Active Substance: CALCIUM\CHOLECALCIFEROL
  22. FOSAMAX [Concomitant]
     Active Substance: ALENDRONATE SODIUM
  23. EPINEPHRINE [Concomitant]
     Active Substance: EPINEPHRINE
  24. HYDROXYCHLOROQUINE [Concomitant]
     Active Substance: HYDROXYCHLOROQUINE
  25. ZYRTEC [Concomitant]
     Active Substance: CETIRIZINE HYDROCHLORIDE
  26. ZOLPIDEM [Concomitant]
     Active Substance: ZOLPIDEM TARTRATE
  27. POTASSIUM [Concomitant]
     Active Substance: POTASSIUM
  28. NORCO [Concomitant]
     Active Substance: ACETAMINOPHEN\HYDROCODONE BITARTRATE
  29. PANTOPRAZOLE [Concomitant]
     Active Substance: PANTOPRAZOLE
  30. SERTRALINE [Concomitant]
     Active Substance: SERTRALINE HYDROCHLORIDE
  31. ZANAFLEX [Concomitant]
     Active Substance: TIZANIDINE HYDROCHLORIDE
  32. LISINOPRIL [Concomitant]
     Active Substance: LISINOPRIL
  33. XELJANZ [Concomitant]
     Active Substance: TOFACITINIB CITRATE
  34. VITAMIN D2 [Concomitant]
     Active Substance: ERGOCALCIFEROL
  35. SINGULAIR [Concomitant]
     Active Substance: MONTELUKAST SODIUM
  36. FUROSEMIDE [Concomitant]
     Active Substance: FUROSEMIDE
  37. FLONASE [Concomitant]
     Active Substance: FLUTICASONE PROPIONATE
  38. METHOTREXATE [Concomitant]
     Active Substance: METHOTREXATE
  39. METOPROLOL [Concomitant]
     Active Substance: METOPROLOL
  40. MELOXICAM [Concomitant]
     Active Substance: MELOXICAM
  41. METHOTREXATE SODIUM [Concomitant]
     Active Substance: METHOTREXATE SODIUM
  42. OZEMPIC [Concomitant]
     Active Substance: SEMAGLUTIDE
  43. PROLIA [Concomitant]
     Active Substance: DENOSUMAB
  44. BUPROPION HYDROCHLORIDE [Concomitant]
     Active Substance: BUPROPION HYDROCHLORIDE
  45. FERROUS SULFATE [Concomitant]
     Active Substance: FERROUS SULFATE
  46. HYDROCHLOROTHIAZIDE [Concomitant]
     Active Substance: HYDROCHLOROTHIAZIDE
  47. BENICAR [Concomitant]
     Active Substance: OLMESARTAN MEDOXOMIL

REACTIONS (24)
  - Gastroenteritis viral [Unknown]
  - Dehydration [Unknown]
  - Arthritis bacterial [Unknown]
  - Pneumonia [Unknown]
  - Clostridium difficile infection [Unknown]
  - Rhinovirus infection [Unknown]
  - Laryngitis [Unknown]
  - Ear infection [Unknown]
  - Urinary tract infection [Unknown]
  - Illness [Unknown]
  - Cellulitis [Recovering/Resolving]
  - Injection site irritation [Recovered/Resolved]
  - Bronchitis [Not Recovered/Not Resolved]
  - Infusion site discharge [Unknown]
  - Cystitis [Unknown]
  - Sinusitis [Unknown]
  - Injection site urticaria [Unknown]
  - Infusion site urticaria [Unknown]
  - Infusion site pruritus [Unknown]
  - Infusion site erythema [Unknown]
  - Infusion site swelling [Unknown]
  - Erythema [Unknown]
  - Infusion site pain [Unknown]
  - Back pain [Unknown]

NARRATIVE: CASE EVENT DATE: 20250127
